FAERS Safety Report 7418622-2 (Version None)
Quarter: 2011Q2

REPORT INFORMATION
  Report Type: 
  Country: None (occurrence: None)
  Receive Date: 20110408
  Receipt Date: 20110404
  Transmission Date: 20111010
  Serious: Yes (Other)
  Sender: FDA-Public Use
  Company Number: A0920514A

PATIENT
  Age: 40 Year
  Sex: Male

DRUGS (1)
  1. ASPIRIN + CAFFEINE (ASPIRIN + CAFFEINE (FORMULATION UNKNOWN) [Suspect]
     Dosage: 10 PACKSGE / PER DAY

REACTIONS (3)
  - GASTRIC ULCER [None]
  - DRUG ADMINISTRATION ERROR [None]
  - DRUG INEFFECTIVE [None]
